FAERS Safety Report 9256346 (Version 2)
Quarter: 2013Q2

REPORT INFORMATION
  Report Type: Spontaneous
  Country: JP (occurrence: JP)
  Receive Date: 20130425
  Receipt Date: 20130517
  Transmission Date: 20140414
  Serious: Yes (Hospitalization)
  Sender: FDA-Public Use
  Company Number: JP-AMGEN-JPNSP2012082078

PATIENT
  Age: 63 Year
  Sex: Female
  Weight: 44 kg

DRUGS (14)
  1. VECTIBIX [Suspect]
     Indication: COLON CANCER
     Dosage: 275 MG, Q2WK
     Route: 041
     Dates: start: 20121025, end: 20121120
  2. IRINOTECAN HYDROCHLORIDE [Suspect]
     Indication: COLON CANCER
     Dosage: UNK UNK, Q2WK
     Route: 041
     Dates: start: 20100506
  3. IRINOTECAN HYDROCHLORIDE [Suspect]
     Dosage: UNK
     Route: 041
     Dates: start: 201108
  4. IRINOTECAN HYDROCHLORIDE [Suspect]
     Dosage: 260 MG, Q2WK
     Route: 041
     Dates: start: 20121025, end: 20121120
  5. FLUOROURACIL [Concomitant]
     Indication: COLON CANCER
     Dosage: UNK, Q2WK
     Route: 042
     Dates: start: 20100506
  6. FLUOROURACIL [Concomitant]
     Dosage: UNK, Q2WK
     Route: 042
     Dates: start: 20110203
  7. FLUOROURACIL [Concomitant]
     Dosage: UNK, Q2WK
     Route: 042
     Dates: start: 20120417
  8. FLUOROURACIL [Concomitant]
     Dosage: 550 MG, Q2WK
     Route: 040
     Dates: start: 20121025, end: 20121122
  9. FLUOROURACIL [Concomitant]
     Dosage: 3400 MG, Q2WK
     Dates: start: 20121025, end: 20121122
  10. LEUCOVORIN                         /00566702/ [Concomitant]
     Indication: COLON CANCER
     Dosage: UNK UNK, Q2WK
     Route: 041
     Dates: start: 20100506
  11. LEUCOVORIN                         /00566702/ [Concomitant]
     Dosage: UNK UNK, Q2WK
     Route: 041
     Dates: start: 20110203
  12. LEUCOVORIN                         /00566702/ [Concomitant]
     Dosage: UNK UNK, Q2WK
     Route: 041
     Dates: start: 201201, end: 20120402
  13. LEUCOVORIN                         /00566702/ [Concomitant]
     Dosage: UNK UNK, Q2WK
     Route: 041
     Dates: start: 20120417
  14. LEUCOVORIN                         /00566702/ [Concomitant]
     Dosage: 275 UNK, Q2WK
     Route: 041
     Dates: start: 20121025, end: 20121120

REACTIONS (1)
  - Interstitial lung disease [Recovering/Resolving]
